FAERS Safety Report 6409533-X (Version None)
Quarter: 2009Q4

REPORT INFORMATION
  Report Type: 
  Country: None (occurrence: None)
  Receive Date: 20091019
  Receipt Date: 20091019
  Transmission Date: 20100525
  Serious: Yes (Life-Threatening)
  Sender: FDA-Public Use
  Company Number: None

PATIENT
  Age: 46 Year
  Sex: Male

DRUGS (1)
  1. SULFAMETHOXAZOLE AND TRIMETHOPRIM [Suspect]
     Indication: PNEUMOCYSTIS JIROVECI PNEUMONIA
     Dosage: 15 ML Q8H IV
     Route: 042
     Dates: start: 20090828, end: 20090828

REACTIONS (3)
  - HYPERTENSION [None]
  - MEDICATION ERROR [None]
  - WRONG DRUG ADMINISTERED [None]
